FAERS Safety Report 9302953 (Version 1)
Quarter: 2013Q2

REPORT INFORMATION
  Report Type: Spontaneous
  Country: US (occurrence: None)
  Receive Date: 20130517
  Receipt Date: 20130517
  Transmission Date: 20140414
  Serious: Yes (Disabling, Other)
  Sender: FDA-Public Use
  Company Number: 2013P1005565

PATIENT
  Age: 63 Year
  Sex: Female
  Weight: 77.11 kg

DRUGS (10)
  1. PREDNISONE [Suspect]
     Indication: SPINAL DISORDER
  2. PREDNISONE [Suspect]
     Indication: INFLAMMATION
  3. PREDNISONE [Suspect]
     Indication: SPINAL DISORDER
  4. PREDNISONE [Suspect]
     Indication: INFLAMMATION
  5. CARAFATE [Concomitant]
  6. CIMETIDINE [Concomitant]
  7. CHLORDIAZEPOXIDE [Concomitant]
  8. CLIDINIUM [Concomitant]
  9. REGLAN [Concomitant]
  10. AVAPRO [Concomitant]

REACTIONS (10)
  - Fluid retention [None]
  - Chills [None]
  - Back pain [None]
  - Oesophageal spasm [None]
  - Arthralgia [None]
  - Gait disturbance [None]
  - Pain [None]
  - Immobile [None]
  - Cushingoid [None]
  - Spinal disorder [None]
